FAERS Safety Report 23796566 (Version 1)
Quarter: 2024Q2

REPORT INFORMATION
  Report Type: Spontaneous
  Country: FR (occurrence: FR)
  Receive Date: 20240430
  Receipt Date: 20240430
  Transmission Date: 20240715
  Serious: Yes (Other)
  Sender: FDA-Public Use
  Company Number: FR-Accord-421065

PATIENT
  Age: 54 Year
  Sex: Female

DRUGS (5)
  1. MYCOPHENOLATE MOFETIL [Suspect]
     Active Substance: MYCOPHENOLATE MOFETIL
     Indication: Immunosuppression
  2. CYCLOSPORINE [Suspect]
     Active Substance: CYCLOSPORINE
     Indication: Immunosuppression
  3. THYMOCYTE IMMUNE GLOBULIN NOS [Concomitant]
     Active Substance: THYMOCYTE IMMUNE GLOBULIN NOS
  4. ACYCLOVIR [Concomitant]
     Active Substance: ACYCLOVIR
     Indication: Prophylaxis
     Dosage: 5 MG/KG TID
  5. ACYCLOVIR [Concomitant]
     Active Substance: ACYCLOVIR
     Indication: Prophylaxis
     Dosage: 10 MG/KG TID

REACTIONS (7)
  - Endocarditis [Unknown]
  - Chorioretinitis [Unknown]
  - Pulmonary tuberculosis [Unknown]
  - Herpes simplex viraemia [Recovered/Resolved]
  - Acute graft versus host disease [Recovered/Resolved]
  - Herpes ophthalmic [Recovered/Resolved]
  - Skin lesion [Recovered/Resolved]
